FAERS Safety Report 10868554 (Version 3)
Quarter: 2015Q4

REPORT INFORMATION
  Report Type: Spontaneous
  Country: US (occurrence: US)
  Receive Date: 20150225
  Receipt Date: 20151111
  Transmission Date: 20160304
  Serious: Yes (Death, Hospitalization, Disabling, Other)
  Sender: FDA-Public Use
  Company Number: US-009507513-1502USA011060

PATIENT
  Sex: Male
  Weight: 103.86 kg

DRUGS (8)
  1. JANUVIA [Suspect]
     Active Substance: SITAGLIPTIN PHOSPHATE
     Indication: TYPE 2 DIABETES MELLITUS
     Dosage: 100 MG, QD
     Route: 048
     Dates: start: 20090319, end: 20111105
  2. CLONIDINE. [Concomitant]
     Active Substance: CLONIDINE
     Dosage: 0.2 MG, BID
     Route: 048
     Dates: start: 200912, end: 201112
  3. JANUMET [Suspect]
     Active Substance: METFORMIN HYDROCHLORIDE\SITAGLIPTIN PHOSPHATE
     Dosage: UNK
     Route: 048
     Dates: start: 2010, end: 20111123
  4. BYETTA [Suspect]
     Active Substance: EXENATIDE
     Dosage: UNK
     Dates: start: 2010, end: 20111123
  5. ACTOPLUS MET [Concomitant]
     Active Substance: METFORMIN HYDROCHLORIDE\PIOGLITAZONE HYDROCHLORIDE
     Dates: start: 200710, end: 201111
  6. VICTOZA [Suspect]
     Active Substance: LIRAGLUTIDE
     Dosage: UNK
     Dates: start: 2010, end: 20111123
  7. SIMVASTATIN. [Concomitant]
     Active Substance: SIMVASTATIN
     Dosage: 20 MG, HS
     Route: 048
     Dates: start: 200912, end: 201111
  8. GLYBURIDE. [Concomitant]
     Active Substance: GLYBURIDE
     Dates: start: 200912, end: 201111

REACTIONS (35)
  - Chest pain [Unknown]
  - Renal failure [Unknown]
  - Hyperlipidaemia [Unknown]
  - Oropharyngeal pain [Unknown]
  - Ascites [Unknown]
  - Headache [Unknown]
  - Feeling abnormal [Unknown]
  - Hypertension [Unknown]
  - Arthritis [Unknown]
  - Pulmonary mass [Unknown]
  - Vitamin D decreased [Unknown]
  - Vertigo [Unknown]
  - Pancreatic carcinoma metastatic [Fatal]
  - Chills [Unknown]
  - Hyperhidrosis [Unknown]
  - Sinusitis [Unknown]
  - Erectile dysfunction [Unknown]
  - Acute respiratory failure [Unknown]
  - Supraventricular tachycardia [Unknown]
  - Gastrooesophageal reflux disease [Unknown]
  - Hypotension [Unknown]
  - Anaemia [Unknown]
  - Anorectal disorder [Unknown]
  - Asthma [Unknown]
  - Sleep apnoea syndrome [Unknown]
  - Oedema [Unknown]
  - Benign prostatic hyperplasia [Unknown]
  - Dysphonia [Unknown]
  - Agitation [Unknown]
  - Hepatic cancer metastatic [Unknown]
  - Ankle fracture [Unknown]
  - Haematochezia [Unknown]
  - Respiratory acidosis [Unknown]
  - Palpitations [Unknown]
  - Hypoglycaemia [Unknown]

NARRATIVE: CASE EVENT DATE: 201111
